FAERS Safety Report 6705893-0 (Version None)
Quarter: 2010Q2

REPORT INFORMATION
  Report Type: 
  Country: None (occurrence: None)
  Receive Date: 20100503
  Receipt Date: 20100203
  Transmission Date: 20101027
  Serious: Yes (Hospitalization)
  Sender: FDA-Public Use
  Company Number: US-ASTRAZENECA-2010SE04822

PATIENT
  Age: 15243 Day
  Sex: Male

DRUGS (4)
  1. NEXIUM [Suspect]
     Dosage: DAILY
     Route: 048
     Dates: start: 20010101, end: 20080101
  2. NEXIUM [Suspect]
     Dosage: DAILY
     Route: 048
     Dates: start: 20080101, end: 20100101
  3. NEXIUM [Suspect]
     Route: 048
     Dates: start: 20100101
  4. PERCOCET [Suspect]
     Dates: start: 20010101, end: 20080101

REACTIONS (3)
  - ANKLE FRACTURE [None]
  - DRUG ABUSE [None]
  - VOMITING [None]
